FAERS Safety Report 25318075 (Version 1)
Quarter: 2025Q2

REPORT INFORMATION
  Report Type: Report from Study
  Country: GB (occurrence: GB)
  Receive Date: 20250515
  Receipt Date: 20250515
  Transmission Date: 20250717
  Serious: Yes (Death, Hospitalization, Other)
  Sender: UCB
  Company Number: GB-UCBSA-2025028310

PATIENT
  Age: 44 Year
  Sex: Male
  Weight: 80.3 kg

DRUGS (9)
  1. BIMEKIZUMAB [Suspect]
     Active Substance: BIMEKIZUMAB
     Indication: Psoriasis
     Dosage: 320 MILLIGRAM, EV 8 WEEKS
     Route: 058
     Dates: start: 20230724
  2. CALCIUM CARBONATE [Concomitant]
     Active Substance: CALCIUM CARBONATE
     Indication: Hepatitis alcoholic
     Dosage: CHEWABLE, 1.25 GRAM, 2X/DAY (BID)
     Route: 048
     Dates: start: 20250406, end: 20250410
  3. MAGNESIUM ASPARTATE [Concomitant]
     Active Substance: MAGNESIUM ASPARTATE
     Indication: Hepatitis alcoholic
     Dosage: 10 MILLIMOLE, 3X/DAY (TID)
     Route: 048
     Dates: start: 20250406, end: 20250410
  4. OMEPRAZOLE [Concomitant]
     Active Substance: OMEPRAZOLE
     Indication: Hepatitis alcoholic
     Route: 048
     Dates: start: 20240626
  5. OMEPRAZOLE [Concomitant]
     Active Substance: OMEPRAZOLE
     Route: 048
  6. SODIUM PHOSPHATE, MONOBASIC, ANHYDROUS [Concomitant]
     Active Substance: SODIUM PHOSPHATE, MONOBASIC, ANHYDROUS
     Indication: Hepatitis alcoholic
     Dosage: 2 DOSAGE FORM, 3X/DAY (TID)
     Route: 048
     Dates: start: 20250406, end: 20250410
  7. POTASSIUM CHLORIDE [Concomitant]
     Active Substance: POTASSIUM CHLORIDE
     Indication: Hepatitis alcoholic
     Dosage: 2 DOSAGE FORM, 3X/DAY (TID)
     Route: 048
     Dates: start: 20250406, end: 20250408
  8. THIAMINE [Concomitant]
     Active Substance: THIAMINE
     Indication: Hepatitis alcoholic
     Dosage: 100 MILLIGRAM, 2X/DAY (BID)
     Route: 048
  9. LEVOTHYROXINE [Concomitant]
     Active Substance: LEVOTHYROXINE
     Indication: Hepatitis alcoholic
     Route: 048
     Dates: start: 20240923

REACTIONS (8)
  - Intestinal obstruction [Fatal]
  - Hepatitis alcoholic [Recovered/Resolved]
  - Unresponsive to stimuli [Unknown]
  - Confusional state [Unknown]
  - Agitation [Unknown]
  - Memory impairment [Unknown]
  - Muscle twitching [Unknown]
  - Respiratory rate increased [Unknown]

NARRATIVE: CASE EVENT DATE: 20250402
